FAERS Safety Report 5525055-2 (Version None)
Quarter: 2007Q4

REPORT INFORMATION
  Report Type: 
  Country: None (occurrence: None)
  Receive Date: 20071119
  Receipt Date: 20071031
  Transmission Date: 20080405
  Serious: Yes (Hospitalization)
  Sender: FDA-Public Use
  Company Number: PHBS2007US18275

PATIENT
  Age: 53 Year
  Sex: Male

DRUGS (5)
  1. BACLOFEN [Suspect]
     Indication: MUSCLE SPASTICITY
     Dosage: INTRATHECAL
     Route: 037
  2. PREDNISONE [Concomitant]
  3. LOVENOX [Concomitant]
  4. PREVACID [Concomitant]
  5. NPH INSULIN (INSULIN INJECTION, ISOPHANE) [Concomitant]

REACTIONS (24)
  - ABDOMINAL DISTENSION [None]
  - ABDOMINAL PAIN [None]
  - ABDOMINAL TENDERNESS [None]
  - ANGIOGRAM ABNORMAL [None]
  - BLOOD CREATININE INCREASED [None]
  - BLOOD PRESSURE DECREASED [None]
  - BODY TEMPERATURE DECREASED [None]
  - ESCHERICHIA INFECTION [None]
  - HAEMATOCRIT DECREASED [None]
  - HAEMATOMA INFECTION [None]
  - HAEMODYNAMIC INSTABILITY [None]
  - HAEMOGLOBIN DECREASED [None]
  - HAEMORRHAGE [None]
  - HEART RATE INCREASED [None]
  - HYDRONEPHROSIS [None]
  - INTRA-ABDOMINAL HAEMATOMA [None]
  - PLATELET COUNT DECREASED [None]
  - PROTHROMBIN TIME SHORTENED [None]
  - PURULENCE [None]
  - PYREXIA [None]
  - RETROPERITONEAL HAEMATOMA [None]
  - THERAPEUTIC EMBOLISATION [None]
  - URINARY RETENTION [None]
  - WHITE BLOOD CELL COUNT INCREASED [None]
